FAERS Safety Report 19210940 (Version 1)
Quarter: 2021Q2

REPORT INFORMATION
  Report Type: Spontaneous
  Country: DO (occurrence: DO)
  Receive Date: 20210504
  Receipt Date: 20210504
  Transmission Date: 20210717
  Serious: Yes (Other)
  Sender: FDA-Public Use
  Company Number: DO-PFIZER INC-2021487466

PATIENT
  Age: 14 Year
  Sex: Female

DRUGS (1)
  1. AMLODIPINE BESILATE [Suspect]
     Active Substance: AMLODIPINE BESYLATE
     Dosage: 20 DF

REACTIONS (5)
  - Overdose [Unknown]
  - Non-cardiogenic pulmonary oedema [Recovering/Resolving]
  - Hypotension [Recovering/Resolving]
  - Discomfort [Recovering/Resolving]
  - Vomiting [Recovering/Resolving]
